FAERS Safety Report 8218479-6 (Version None)
Quarter: 2012Q1

REPORT INFORMATION
  Report Type: 
  Country: None (occurrence: None)
  Receive Date: 20120319
  Receipt Date: 20120316
  Transmission Date: 20120608
  Serious: No
  Sender: FDA-Public Use
  Company Number: US-PFIZER INC-2011095174

PATIENT
  Sex: Female
  Weight: 99.773 kg

DRUGS (11)
  1. MULTI-VITAMINS [Concomitant]
     Dosage: 1 DF, SINGLE
  2. DEPAKOTE [Concomitant]
     Dosage: 500 MG, 2X/DAY
     Route: 048
  3. CO-Q-10 [Concomitant]
     Dosage: 300 MG, 1X/DAY
  4. POTASSIUM PENCILLIN G [Suspect]
     Dosage: UNK
  5. SIMVASTATIN [Concomitant]
     Dosage: 20 MG, 1X/DAY
  6. ACETYLSALICYLIC ACID [Concomitant]
     Dosage: 81 MG
  7. OSTEO BI-FLEX [Concomitant]
     Dosage: 2 DF, 1X/DAY
  8. FISH OIL [Concomitant]
     Dosage: 1200 MG, 1X/DAY
     Route: 048
  9. CALCIUM WITH VITAMIN D [Concomitant]
     Dosage: 500 MG, 1X/DAY
  10. DITROPAN [Concomitant]
     Indication: BLADDER DISORDER
     Dosage: 10 MG, 1X/DAY AS NEEDED
  11. LOXIN [Concomitant]
     Dosage: 2 DF, 1X/DAY

REACTIONS (1)
  - HYPERSENSITIVITY [None]
